FAERS Safety Report 10761991 (Version 2)
Quarter: 2015Q1

REPORT INFORMATION
  Report Type: Spontaneous
  Country: US (occurrence: US)
  Receive Date: 20150204
  Receipt Date: 20150208
  Transmission Date: 20150721
  Serious: No
  Sender: FDA-Public Use
  Company Number: US-009507513-1501USA012149

PATIENT
  Sex: Male

DRUGS (1)
  1. PROVENTIL [Suspect]
     Active Substance: ALBUTEROL
     Indication: BRONCHITIS
     Dosage: TWO TO FOUR TIMES PER DAY
     Route: 055

REACTIONS (3)
  - Product quality issue [Unknown]
  - Inappropriate schedule of drug administration [Unknown]
  - Bronchitis [Unknown]
